FAERS Safety Report 6395184-2 (Version None)
Quarter: 2009Q4

REPORT INFORMATION
  Report Type: 
  Country: None (occurrence: None)
  Receive Date: 20091009
  Receipt Date: 20091005
  Transmission Date: 20100525
  Serious: Yes (Death, Hospitalization, Other)
  Sender: FDA-Public Use
  Company Number: PHHO2008US11978

PATIENT
  Sex: Male
  Weight: 142.5 kg

DRUGS (3)
  1. ERL 080A ERL+TAB [Suspect]
     Indication: RENAL TRANSPLANT
     Dosage: 720 MG, BID
     Route: 048
     Dates: start: 20060526
  2. NEORAL [Concomitant]
  3. SIMULECT [Concomitant]

REACTIONS (25)
  - ABDOMINAL HERNIA [None]
  - ABDOMINAL PAIN UPPER [None]
  - ASPIRATION [None]
  - ATRIAL FIBRILLATION [None]
  - BENIGN PROSTATIC HYPERPLASIA [None]
  - BRONCHOPNEUMONIA [None]
  - CARDIAC ARREST [None]
  - CHEST PAIN [None]
  - CONSTIPATION [None]
  - DIVERTICULUM INTESTINAL [None]
  - FAECAL VOMITING [None]
  - INTESTINAL STRANGULATION [None]
  - LIPOMA [None]
  - MENINGIOMA [None]
  - NAUSEA [None]
  - OESOPHAGITIS [None]
  - PLEURAL EFFUSION [None]
  - PROSTATITIS [None]
  - RESUSCITATION [None]
  - SUBENDOCARDIAL ISCHAEMIA [None]
  - TESTICULAR ATROPHY [None]
  - THYROID CANCER [None]
  - UNRESPONSIVE TO STIMULI [None]
  - VENTRICULAR EXTRASYSTOLES [None]
  - VOMITING [None]
